FAERS Safety Report 11352946 (Version 1)
Quarter: 2015Q3

REPORT INFORMATION
  Report Type: Spontaneous
  Country: US (occurrence: US)
  Receive Date: 20150807
  Receipt Date: 20150807
  Transmission Date: 20151125
  Serious: No
  Sender: FDA-Public Use
  Company Number: US-JNJFOC-20150205822

PATIENT
  Age: 71 Year
  Sex: Female
  Weight: 58.06 kg

DRUGS (5)
  1. VITAMINS [Concomitant]
     Active Substance: VITAMINS
     Indication: ROUTINE HEALTH MAINTENANCE
     Dosage: ONCE A DAY
     Route: 065
  2. FISH OIL [Concomitant]
     Active Substance: FISH OIL
     Indication: ROUTINE HEALTH MAINTENANCE
     Dosage: ONCE A DAY
     Route: 065
  3. CHOLESTEROL [Concomitant]
     Active Substance: CHOLESTEROL
     Indication: BLOOD CHOLESTEROL INCREASED
     Dosage: ONCE A DAY
     Route: 065
  4. MENS ROGAINE EXTRA STRENGTH [Suspect]
     Active Substance: MINOXIDIL
     Route: 061
  5. MENS ROGAINE EXTRA STRENGTH [Suspect]
     Active Substance: MINOXIDIL
     Indication: HAIR GROWTH ABNORMAL
     Dosage: A LITTLE MORE THAN A DROPPER ONCE A DAY
     Route: 061
     Dates: start: 20150121, end: 20150203

REACTIONS (5)
  - Inappropriate schedule of drug administration [Unknown]
  - Pruritus [Not Recovered/Not Resolved]
  - Drug prescribing error [Unknown]
  - Scab [Not Recovered/Not Resolved]
  - Wrong patient received medication [Unknown]

NARRATIVE: CASE EVENT DATE: 20150131
